FAERS Safety Report 8037358-0 (Version None)
Quarter: 2012Q1

REPORT INFORMATION
  Report Type: 
  Country: None (occurrence: None)
  Receive Date: 20120111
  Receipt Date: 20120105
  Transmission Date: 20120608
  Serious: Yes (Life-Threatening, Hospitalization, Other)
  Sender: FDA-Public Use
  Company Number: DE-MEDIMMUNE-MEDI-0014158

PATIENT
  Sex: Male
  Weight: 7.3 kg

DRUGS (7)
  1. FLUTICASONE PROPIONATE [Concomitant]
  2. MONTELUKAST SODIUM [Concomitant]
  3. HYDROCHLOROTHIAZIDE [Concomitant]
     Dates: start: 20111107
  4. SYNAGIS [Suspect]
     Dates: start: 20111111, end: 20111111
  5. POTASSIUM CANRENOATE [Concomitant]
     Dates: start: 20111107
  6. SALBUTAMOL PLUS ATROVENT [Concomitant]
     Route: 055
  7. SYNAGIS [Suspect]
     Dates: start: 20111008, end: 20111008

REACTIONS (12)
  - EXPOSURE TO CONTAMINATED AIR [None]
  - GENERAL PHYSICAL HEALTH DETERIORATION [None]
  - GASTROOESOPHAGEAL REFLUX DISEASE [None]
  - PYREXIA [None]
  - BRONCHITIS [None]
  - RESPIRATORY ACIDOSIS [None]
  - EXPOSURE TO ALLERGEN [None]
  - PNEUMONIA ASPIRATION [None]
  - RESPIRATORY FAILURE [None]
  - RESPIRATORY DISTRESS [None]
  - DIARRHOEA [None]
  - DYSPNOEA [None]
